FAERS Safety Report 7734868-8 (Version None)
Quarter: 2011Q3

REPORT INFORMATION
  Report Type: 
  Country: None (occurrence: None)
  Receive Date: 20110907
  Receipt Date: 20110824
  Transmission Date: 20111222
  Serious: Yes (Other)
  Sender: FDA-Public Use
  Company Number: US-CUBIST-2011S1000553

PATIENT
  Sex: Male

DRUGS (9)
  1. CUBICIN [Suspect]
     Route: 042
  2. VANCOMYCIN [Concomitant]
     Indication: STAPHYLOCOCCAL INFECTION
     Route: 042
  3. CUBICIN [Suspect]
     Route: 042
  4. ALL OTHER THERAPEUTIC PRODUCTS [Concomitant]
     Indication: STAPHYLOCOCCAL INFECTION
     Route: 042
  5. CUBICIN [Suspect]
     Indication: STAPHYLOCOCCAL INFECTION
     Route: 042
  6. PIPERACILLIN AND TAZOBACTAM [Concomitant]
     Indication: STAPHYLOCOCCAL INFECTION
     Route: 042
  7. LINEZOLID [Concomitant]
     Indication: STAPHYLOCOCCAL INFECTION
     Route: 048
  8. ALL OTHER THERAPEUTIC PRODUCTS [Concomitant]
     Route: 042
  9. CUBICIN [Suspect]
     Route: 042

REACTIONS (1)
  - PARASPINAL ABSCESS [None]
